FAERS Safety Report 17389431 (Version 1)
Quarter: 2020Q1

REPORT INFORMATION
  Report Type: Spontaneous
  Country: US (occurrence: US)
  Receive Date: 20200207
  Receipt Date: 20200207
  Transmission Date: 20200409
  Serious: No
  Sender: FDA-Public Use
  Company Number: US-ASTRAZENECA-2020SE06459

PATIENT
  Age: 879 Month
  Sex: Female
  Weight: 58.5 kg

DRUGS (6)
  1. NASONEX NOSE SPRAY [Concomitant]
     Indication: HYPERSENSITIVITY
     Route: 045
     Dates: start: 2019
  2. TENORMIN [Concomitant]
     Active Substance: ATENOLOL
     Indication: BLOOD PRESSURE MEASUREMENT
     Route: 048
  3. SYMBICORT [Suspect]
     Active Substance: BUDESONIDE\FORMOTEROL FUMARATE DIHYDRATE
     Indication: ASTHMA
     Dosage: 160/4.5 MCG 2 PUFFS BID (TWO TIMES A DAY)
     Route: 055
     Dates: start: 201912
  4. VENTOLIN [Concomitant]
     Active Substance: ALBUTEROL SULFATE
     Indication: DRUG THERAPY
     Dosage: AS REQUIRED
     Route: 055
  5. SYMBICORT [Suspect]
     Active Substance: BUDESONIDE\FORMOTEROL FUMARATE DIHYDRATE
     Indication: ASTHMA
     Dosage: 160/4.5 MCG 1 PUFFS BID
     Route: 055
  6. VITAMIN   D3  WITH CALCIUM [Concomitant]
     Indication: BONE DISORDER
     Route: 048

REACTIONS (6)
  - Chest pain [Recovered/Resolved]
  - Chest discomfort [Recovered/Resolved]
  - Asthma [Recovered/Resolved]
  - Sinus disorder [Recovered/Resolved]
  - Dyspnoea exertional [Not Recovered/Not Resolved]
  - Nasopharyngitis [Recovered/Resolved]

NARRATIVE: CASE EVENT DATE: 201912
